FAERS Safety Report 8350996 (Version 3)
Quarter: 2014Q4

REPORT INFORMATION
  Report Type: Spontaneous
  Country: US (occurrence: US)
  Receive Date: 20120124
  Receipt Date: 20141008
  Transmission Date: 20150529
  Serious: Yes (Other)
  Sender: FDA-Public Use
  Company Number: US-ROCHE-1032850

PATIENT
  Sex: Female
  Weight: 77.18 kg

DRUGS (4)
  1. ACCUTANE [Suspect]
     Active Substance: ISOTRETINOIN
     Dosage: THIRD USE
     Route: 065
     Dates: start: 1996
  2. ACCUTANE [Suspect]
     Active Substance: ISOTRETINOIN
     Indication: ACNE
     Route: 065
     Dates: start: 19960101, end: 19971231
  3. ACCUTANE [Suspect]
     Active Substance: ISOTRETINOIN
     Dosage: FIRST USE
     Route: 065
     Dates: start: 1994
  4. ACCUTANE [Suspect]
     Active Substance: ISOTRETINOIN
     Dosage: SECOND USE
     Route: 065
     Dates: start: 1995

REACTIONS (6)
  - Colitis ulcerative [Unknown]
  - Anal fissure [Unknown]
  - Inflammatory bowel disease [Unknown]
  - Depression [Not Recovered/Not Resolved]
  - Irritable bowel syndrome [Unknown]
  - Injury [Unknown]

NARRATIVE: CASE EVENT DATE: 1998
